FAERS Safety Report 11215205 (Version 1)
Quarter: 2015Q2

REPORT INFORMATION
  Report Type: Spontaneous
  Country: JP (occurrence: None)
  Receive Date: 20150622
  Receipt Date: 20150622
  Transmission Date: 20150821
  Serious: Yes (Life-Threatening)
  Sender: FDA-Public Use
  Company Number: 2015FE01993

PATIENT
  Age: 73 Year
  Sex: Male
  Weight: 56 kg

DRUGS (6)
  1. BAYASPIRIN (ACETYLSALICYLIC ACID) (ACETYLSALICYLIC ACID) [Concomitant]
     Active Substance: ASPIRIN
  2. DDAVP [Suspect]
     Active Substance: DESMOPRESSIN ACETATE
     Indication: DIABETES INSIPIDUS
     Route: 045
     Dates: start: 20150322, end: 20150322
  3. SOLU-CORTEF [Suspect]
     Active Substance: HYDROCORTISONE SODIUM SUCCINATE
     Indication: HYPOPITUITARISM
     Dates: start: 20150320, end: 20150320
  4. HERBESSER [Concomitant]
     Active Substance: DILTIAZEM HYDROCHLORIDE
  5. ARTIST (CARVEDILOL) (CARVEDILOL) [Concomitant]
     Active Substance: CARVEDILOL
  6. ITOROL (ISOSORBIDE MONONITRATE) [Concomitant]

REACTIONS (2)
  - Hyponatraemia [None]
  - Blood potassium decreased [None]

NARRATIVE: CASE EVENT DATE: 20150325
